FAERS Safety Report 6155128-5 (Version None)
Quarter: 2009Q2

REPORT INFORMATION
  Report Type: 
  Country: None (occurrence: None)
  Receive Date: 20090415
  Receipt Date: 20070605
  Transmission Date: 20091009
  Serious: Yes (Hospitalization, Other)
  Sender: FDA-Public Use
  Company Number: US-ASTRAZENECA-2006UW24700

PATIENT
  Age: 14140 Day
  Sex: Female
  Weight: 78.5 kg

DRUGS (18)
  1. SEROQUEL [Suspect]
     Indication: ILL-DEFINED DISORDER
     Route: 048
     Dates: start: 20020516
  2. SEROQUEL [Suspect]
     Indication: PSYCHOTIC DISORDER
     Route: 048
     Dates: start: 20020516
  3. SEROQUEL [Suspect]
     Route: 048
     Dates: start: 20030318, end: 20060714
  4. SEROQUEL [Suspect]
     Route: 048
     Dates: start: 20030318, end: 20060714
  5. SEROQUEL [Suspect]
     Dosage: 300 TO 400 MG
     Route: 048
  6. SEROQUEL [Suspect]
     Dosage: 300 TO 400 MG
     Route: 048
  7. HALDOL [Concomitant]
  8. RISPERDAL [Concomitant]
  9. ZYPREXA [Concomitant]
  10. PROLIXIN [Concomitant]
  11. COGENTIN [Concomitant]
  12. GEODON [Concomitant]
  13. AMBIEN [Concomitant]
  14. ATIVAN [Concomitant]
  15. BENADRYL [Concomitant]
  16. PROSOM [Concomitant]
  17. TYLENOL [Concomitant]
  18. DEPAKOTE [Concomitant]

REACTIONS (12)
  - ANAEMIA [None]
  - BIPOLAR I DISORDER [None]
  - COMPRESSION FRACTURE [None]
  - DENTAL CARIES [None]
  - HYPERGLYCAEMIA [None]
  - HYPOTENSION [None]
  - INSOMNIA [None]
  - OTITIS MEDIA [None]
  - PSYCHOTIC DISORDER [None]
  - SCHIZOAFFECTIVE DISORDER [None]
  - SCHIZOPHRENIA, PARANOID TYPE [None]
  - URTICARIA [None]
